FAERS Safety Report 8141685-6 (Version None)
Quarter: 2012Q1

REPORT INFORMATION
  Report Type: 
  Country: None (occurrence: None)
  Receive Date: 20120216
  Receipt Date: 20120213
  Transmission Date: 20120608
  Serious: No
  Sender: FDA-Public Use
  Company Number: US-TEVA-322746USA

PATIENT
  Sex: Female
  Weight: 55.388 kg

DRUGS (2)
  1. PLAN B ONE-STEP [Suspect]
     Indication: POST COITAL CONTRACEPTION
     Dosage: 1.5 MILLIGRAM;
     Route: 048
     Dates: start: 20120213, end: 20120213
  2. FERROUS SULFATE TAB [Concomitant]
     Indication: ANAEMIA

REACTIONS (1)
  - HEADACHE [None]
